FAERS Safety Report 12301095 (Version 2)
Quarter: 2016Q3

REPORT INFORMATION
  Report Type: Report from Study
  Country: CA (occurrence: CA)
  Receive Date: 20160425
  Receipt Date: 20160715
  Transmission Date: 20161109
  Serious: Yes (Hospitalization, Other)
  Sender: FDA-Public Use
  Company Number: CA-BAYER-2016-072657

PATIENT
  Age: 55 Year
  Sex: Male

DRUGS (4)
  1. BETASERON [Suspect]
     Active Substance: INTERFERON BETA-1B
     Indication: SECONDARY PROGRESSIVE MULTIPLE SCLEROSIS
     Dosage: 250 ML, UNK
     Route: 058
     Dates: start: 20000616, end: 20160531
  2. ZANAFLEX [Concomitant]
     Active Substance: TIZANIDINE HYDROCHLORIDE
     Dosage: UNK
  3. IBUPROFEN. [Concomitant]
     Active Substance: IBUPROFEN
     Dosage: UNK
  4. DUTASTERIDE. [Concomitant]
     Active Substance: DUTASTERIDE

REACTIONS (4)
  - Localised infection [Not Recovered/Not Resolved]
  - Multiple sclerosis [None]
  - Localised infection [None]
  - Benign prostatic hyperplasia [None]

NARRATIVE: CASE EVENT DATE: 2007
